FAERS Safety Report 23312999 (Version 1)
Quarter: 2023Q4

REPORT INFORMATION
  Report Type: Other
  Country: US (occurrence: None)
  Receive Date: 20231219
  Receipt Date: 20231219
  Transmission Date: 20240110
  Serious: Yes (Hospitalization)
  Sender: FDA-Public Use
  Company Number: US-ROCHE-3471477

PATIENT
  Age: 64 Year
  Sex: Female

DRUGS (1)
  1. OCREVUS [Suspect]
     Active Substance: OCRELIZUMAB
     Indication: Primary progressive multiple sclerosis
     Dosage: BY PORT ;ONGOING: YES, DATE OF TREATMENT?2018-02-28,2018-09-04,2023-03-30,2022-03-24,2021-09-23,2021
     Route: 050

REACTIONS (4)
  - Fall [Unknown]
  - Urinary tract infection [Recovered/Resolved]
  - Haematological infection [Recovered/Resolved]
  - Off label use [Unknown]

NARRATIVE: CASE EVENT DATE: 20230901
